FAERS Safety Report 4830244-6 (Version None)
Quarter: 2005Q4

REPORT INFORMATION
  Report Type: 
  Country: None (occurrence: None)
  Receive Date: 20051117
  Receipt Date: 20051114
  Transmission Date: 20060501
  Serious: Yes (Other)
  Sender: FDA-Public Use
  Company Number: CA-GLAXOSMITHKLINE-A0582354A

PATIENT
  Age: 56 Year
  Sex: Female

DRUGS (18)
  1. WELLBUTRIN SR [Suspect]
     Indication: DRUG USE FOR UNKNOWN INDICATION
     Dosage: 100MG PER DAY
     Route: 048
  2. CITALOPRAM [Suspect]
     Dosage: 30MG PER DAY
     Route: 048
  3. DIMENHYDRINATE [Concomitant]
     Route: 048
  4. ENALAPRIL [Concomitant]
     Route: 048
  5. GABAPENTIN [Concomitant]
     Route: 048
  6. INSULIN [Concomitant]
  7. LEVOTHYROXINE SODIUM [Concomitant]
     Route: 048
  8. LORAZEPAM [Concomitant]
     Route: 048
  9. MAALOX FAST BLOCKER [Concomitant]
     Route: 048
  10. MAGNESIUM HYDROXIDE TAB [Concomitant]
     Route: 048
  11. MEPERIDINE [Concomitant]
     Route: 030
  12. METFORMIN [Concomitant]
     Route: 048
  13. NITROGLYCERIN [Concomitant]
     Route: 060
  14. PANTOPRAZOLE [Concomitant]
     Route: 048
  15. SODIUM PHOSPHATE ENEMA [Concomitant]
     Route: 054
  16. AMITRIPTYLINE HCL [Concomitant]
     Route: 048
  17. AVANDIA [Concomitant]
     Route: 048
  18. BISACODYL [Concomitant]
     Route: 054

REACTIONS (3)
  - DYSGEUSIA [None]
  - EYE ROLLING [None]
  - MUSCLE CONTRACTIONS INVOLUNTARY [None]
